FAERS Safety Report 4656282-4 (Version None)
Quarter: 2005Q2

REPORT INFORMATION
  Report Type: 
  Country: None (occurrence: None)
  Receive Date: 20050509
  Receipt Date: 20050329
  Transmission Date: 20051028
  Serious: No
  Sender: FDA-Public Use
  Company Number: 200511900US

PATIENT
  Sex: Female

DRUGS (2)
  1. AVANDAMET [Suspect]
     Indication: DRUG USE FOR UNKNOWN INDICATION
     Route: 048
  2. GLIMEPIRIDE [Suspect]
     Dosage: 1MG PER DAY
     Route: 065

REACTIONS (2)
  - DYSGEUSIA [None]
  - STOMACH DISCOMFORT [None]
